FAERS Safety Report 6853143-7 (Version None)
Quarter: 2010Q3

REPORT INFORMATION
  Report Type: 
  Country: None (occurrence: None)
  Receive Date: 20100717
  Receipt Date: 20071130
  Transmission Date: 20110219
  Serious: Yes (Other)
  Sender: FDA-Public Use
  Company Number: US-PFIZER INC-2007103464

PATIENT
  Sex: Female
  Weight: 53.181 kg

DRUGS (3)
  1. CHANTIX [Suspect]
     Indication: SMOKING CESSATION THERAPY
     Dosage: EVERY DAY
     Dates: start: 20071116, end: 20071128
  2. ULTRAM [Concomitant]
     Indication: FIBROMYALGIA
  3. PREDNISONE [Concomitant]
     Indication: LUNG DISORDER

REACTIONS (3)
  - NAUSEA [None]
  - OEDEMA PERIPHERAL [None]
  - VOMITING [None]
